FAERS Safety Report 9020073 (Version 1)
Quarter: 2013Q1

REPORT INFORMATION
  Report Type: Spontaneous
  Country: US (occurrence: US)
  Receive Date: 20130119
  Receipt Date: 20130119
  Transmission Date: 20140127
  Serious: No
  Sender: FDA-Public Use
  Company Number: US-ALLERGAN-1211090US

PATIENT
  Sex: Male

DRUGS (2)
  1. BOTOX? [Suspect]
     Indication: MIGRAINE
     Dosage: UNK UNK, SINGLE
     Route: 030
     Dates: start: 20120802, end: 20120802
  2. BOTOX? [Suspect]
     Dosage: UNK
     Dates: start: 2011

REACTIONS (2)
  - Incorrect dose administered [Unknown]
  - Musculoskeletal stiffness [Unknown]
